FAERS Safety Report 15111749 (Version 1)
Quarter: 2018Q3

REPORT INFORMATION
  Report Type: Report from Study
  Country: DE (occurrence: DE)
  Receive Date: 20180705
  Receipt Date: 20180705
  Transmission Date: 20181010
  Serious: Yes (Congenital Anomaly)
  Sender: FDA-Public Use
  Company Number: DE-TEVA-2018-DE-919870

PATIENT
  Sex: Male

DRUGS (4)
  1. PROGESTERONE. [Concomitant]
     Active Substance: PROGESTERONE
     Dosage: EXPOSURE DURATION: 11?14 GESTATIONAL WEEKS
     Route: 064
  2. RAMIPRIL. [Suspect]
     Active Substance: RAMIPRIL
     Indication: HYPERTENSION
     Dosage: EXPOSURE DURING 0?4+5 GESTATIONAL WEEKS
     Route: 064
  3. PROPRANOLOL [Concomitant]
     Active Substance: PROPRANOLOL HYDROCHLORIDE
     Dosage: EXPOSURE DURATION: 0?33+4 GESTATIONAL WEEKS
     Route: 064
  4. METHYLDOPA. [Concomitant]
     Active Substance: METHYLDOPA
     Dosage: EXPOSURE DURATION: 4+5?33+4 GESTATIONAL WEEKS
     Route: 064

REACTIONS (3)
  - Congenital hydronephrosis [Unknown]
  - Ureteric stenosis [Unknown]
  - Foetal exposure during pregnancy [Unknown]
